FAERS Safety Report 13059616 (Version 2)
Quarter: 2016Q4

REPORT INFORMATION
  Report Type: Spontaneous
  Country: BR (occurrence: BR)
  Receive Date: 20161223
  Receipt Date: 20161227
  Transmission Date: 20170207
  Serious: Yes (Life-Threatening, Hospitalization)
  Sender: FDA-Public Use
  Company Number: BR-JNJFOC-20161217824

PATIENT
  Age: 82 Year
  Sex: Female
  Weight: 36.8 kg

DRUGS (1)
  1. XARELTO [Suspect]
     Active Substance: RIVAROXABAN
     Indication: THROMBOSIS
     Route: 048
     Dates: start: 20161209, end: 20161214

REACTIONS (2)
  - Haematemesis [Unknown]
  - Hypotension [Unknown]

NARRATIVE: CASE EVENT DATE: 20161215
